FAERS Safety Report 12821214 (Version 1)
Quarter: 2016Q4

REPORT INFORMATION
  Report Type: Report from Study
  Country: US (occurrence: US)
  Receive Date: 20161007
  Receipt Date: 20161007
  Transmission Date: 20170207
  Serious: Yes (Hospitalization, Other)
  Sender: FDA-Public Use
  Company Number: US-ROCHE-1550206

PATIENT
  Age: 73 Year
  Sex: Female
  Weight: 51.8 kg

DRUGS (7)
  1. VELIPARIB [Suspect]
     Active Substance: VELIPARIB
     Indication: OVARIAN EPITHELIAL CANCER
     Dosage: LAST DOSE10/20/2014
     Route: 048
     Dates: start: 20140616
  2. CARBOPLATIN. [Suspect]
     Active Substance: CARBOPLATIN
     Indication: OVARIAN EPITHELIAL CANCER
     Dosage: AUC = 6  LAST DOSE 10/01/2014
     Route: 042
     Dates: start: 20140618
  3. SULFAMETHOXAZOLE/TRIMETHOPRIM [Suspect]
     Active Substance: SULFAMETHOXAZOLE\TRIMETHOPRIM
     Indication: CHRONIC SINUSITIS
     Route: 065
  4. BEVACIZUMAB [Suspect]
     Active Substance: BEVACIZUMAB
     Route: 042
     Dates: start: 20140730
  5. PACLITAXEL. [Suspect]
     Active Substance: PACLITAXEL
     Indication: OVARIAN EPITHELIAL CANCER
     Dosage: LAST DOSE 10/01/2014
     Route: 042
     Dates: start: 20140618
  6. BEVACIZUMAB [Suspect]
     Active Substance: BEVACIZUMAB
     Indication: OVARIAN EPITHELIAL CANCER
     Dosage: OVER 30-90 MINS. ON DAY 1
     Route: 042
     Dates: start: 20140709
  7. BEVACIZUMAB [Suspect]
     Active Substance: BEVACIZUMAB
     Route: 042
     Dates: start: 20140820

REACTIONS (10)
  - Febrile neutropenia [Unknown]
  - Hypertension [Unknown]
  - Anaemia [Unknown]
  - Hyponatraemia [Unknown]
  - Proteinuria [Unknown]
  - Fatigue [Recovered/Resolved]
  - Hypocalcaemia [Unknown]
  - Neutrophil count decreased [Unknown]
  - White blood cell count decreased [Unknown]
  - Hyponatraemia [Recovered/Resolved]

NARRATIVE: CASE EVENT DATE: 20150101
